FAERS Safety Report 5642747-5 (Version None)
Quarter: 2008Q1

REPORT INFORMATION
  Report Type: 
  Country: None (occurrence: None)
  Receive Date: 20080228
  Receipt Date: 20080220
  Transmission Date: 20080703
  Serious: Yes (Hospitalization, Other)
  Sender: FDA-Public Use
  Company Number: BR-ASTRAZENECA-2007UW25396

PATIENT
  Age: 91 Year
  Sex: Female

DRUGS (8)
  1. ARIMIDEX [Suspect]
     Route: 048
     Dates: start: 20070401
  2. MAREVAN [Concomitant]
     Indication: ANTICOAGULANT THERAPY
     Dates: start: 20060101
  3. EUTHROID-1 [Concomitant]
     Dates: start: 20040101
  4. PROLOPA [Concomitant]
     Indication: PARKINSON'S DISEASE
     Dates: start: 20040101
  5. HIDANTAL [Concomitant]
     Indication: CONVULSION
     Dates: start: 20040101
  6. MALEATO DE ENALAPRIL [Concomitant]
     Indication: HYPERTENSION
  7. RANITIDINE [Concomitant]
     Dates: end: 20070901
  8. OMEPRAZOLE [Concomitant]
     Dates: start: 20071001

REACTIONS (13)
  - AGITATION [None]
  - DUODENAL ULCER [None]
  - ERYSIPELAS [None]
  - HERPES VIRUS INFECTION [None]
  - INSOMNIA [None]
  - METASTASES TO LUNG [None]
  - PLEURAL EFFUSION [None]
  - PNEUMONIA [None]
  - PULMONARY HAEMORRHAGE [None]
  - PYREXIA [None]
  - RESPIRATORY FAILURE [None]
  - SECRETION DISCHARGE [None]
  - URINARY TRACT INFECTION [None]
